FAERS Safety Report 4577333-1 (Version None)
Quarter: 2005Q1

REPORT INFORMATION
  Report Type: 
  Country: None (occurrence: None)
  Receive Date: 20050210
  Receipt Date: 20050126
  Transmission Date: 20050727
  Serious: Yes (Other)
  Sender: FDA-Public Use
  Company Number: US-GLAXOSMITHKLINE-A0542424A

PATIENT
  Age: 49 Year
  Sex: Male

DRUGS (2)
  1. VALTREX [Suspect]
     Dosage: 500MG TWICE PER DAY
     Route: 048
     Dates: start: 19990301
  2. NO CONCURRENT MEDICATION [Concomitant]

REACTIONS (1)
  - DEAFNESS [None]
